FAERS Safety Report 7434548-2 (Version None)
Quarter: 2011Q2

REPORT INFORMATION
  Report Type: 
  Country: None (occurrence: None)
  Receive Date: 20110425
  Receipt Date: 20110418
  Transmission Date: 20111010
  Serious: Yes (Life-Threatening, Hospitalization, Disabling, Other)
  Sender: FDA-Public Use
  Company Number: GB-MPIJNJ-2011-00697

PATIENT

DRUGS (3)
  1. VELCADE [Suspect]
     Dosage: UNK
     Route: 042
     Dates: start: 20101201, end: 20110201
  2. DEXAMETHASONE [Suspect]
     Indication: MULTIPLE MYELOMA
  3. VELCADE [Suspect]
     Indication: MULTIPLE MYELOMA
     Dosage: UNK
     Dates: start: 20101026, end: 20101224

REACTIONS (3)
  - DRUG INEFFECTIVE [None]
  - HYPERCALCAEMIA [None]
  - BONE MARROW FAILURE [None]
